FAERS Safety Report 5469370-X (Version None)
Quarter: 2007Q3

REPORT INFORMATION
  Report Type: 
  Country: None (occurrence: None)
  Receive Date: 20070927
  Receipt Date: 20070914
  Transmission Date: 20080115
  Serious: Yes (Hospitalization)
  Sender: FDA-Public Use
  Company Number: BR-ELI_LILLY_AND_COMPANY-BR200709004382

PATIENT
  Age: 91 Year
  Sex: Female

DRUGS (8)
  1. FORTEO [Suspect]
     Indication: OSTEOPOROSIS
     Dosage: 20 UG, DAILY (1/D)
     Route: 058
     Dates: start: 20070601
  2. CAPTOPRIL [Concomitant]
     Indication: CARDIAC DISORDER
     Dosage: 25 MG, UNKNOWN
     Route: 065
  3. NIMODIPINE [Concomitant]
     Indication: CARDIAC DISORDER
     Dosage: 30 MG, UNKNOWN
     Route: 065
  4. PRELONE [Concomitant]
     Indication: ARTHRITIS
     Dosage: 3 ML, 2/D
     Route: 065
  5. ATROVENT [Concomitant]
     Indication: LUNG DISORDER
     Dosage: UNK, UNKNOWN
     Route: 055
  6. BEROTEC [Concomitant]
     Indication: LUNG DISORDER
     Dosage: UNK, UNKNOWN
     Route: 055
  7. CALCIUM [Concomitant]
     Dosage: UNK, UNKNOWN
     Route: 065
  8. HIDANTAL [Concomitant]
     Indication: CONVULSION PROPHYLAXIS
     Dosage: UNK, UNKNOWN
     Route: 065

REACTIONS (3)
  - BLOOD PRESSURE FLUCTUATION [None]
  - CONVULSION [None]
  - HEART RATE ABNORMAL [None]
